FAERS Safety Report 11062740 (Version 1)
Quarter: 2015Q2

REPORT INFORMATION
  Report Type: Spontaneous
  Country: IT (occurrence: None)
  Receive Date: 20150422
  Receipt Date: 20150422
  Transmission Date: 20150821
  Serious: Yes (Hospitalization)
  Sender: FDA-Public Use
  Company Number: FK201501828

PATIENT
  Age: 79 Year
  Sex: Female

DRUGS (3)
  1. CONGESCOR (BISOPROLOL FUMARATE) [Concomitant]
  2. LEVOFLOXACIN. [Suspect]
     Active Substance: LEVOFLOXACIN
     Indication: SEPSIS
     Dosage: NOT OTHERWISE SPECIFIED
     Route: 042
     Dates: start: 20150318, end: 20150324
  3. ENAPREN (ENALAPRIL MALEATE) [Concomitant]
     Active Substance: ENALAPRIL MALEATE

REACTIONS (3)
  - Hypotension [None]
  - Presyncope [None]
  - Hyperhidrosis [None]

NARRATIVE: CASE EVENT DATE: 20150320
